FAERS Safety Report 14031371 (Version 1)
Quarter: 2017Q4

REPORT INFORMATION
  Report Type: Report from Study
  Country: US (occurrence: US)
  Receive Date: 20171002
  Receipt Date: 20171002
  Transmission Date: 20180321
  Serious: Yes (Hospitalization)
  Sender: FDA-Public Use
  Company Number: US-EISAI MEDICAL RESEARCH-EC-2017-029242

PATIENT
  Sex: Female

DRUGS (3)
  1. INLYTA [Concomitant]
     Active Substance: AXITINIB
  2. LENVIMA [Suspect]
     Active Substance: LENVATINIB
     Indication: RENAL CANCER
     Route: 048
     Dates: start: 20170608, end: 201708
  3. AFINITOR [Concomitant]
     Active Substance: EVEROLIMUS

REACTIONS (25)
  - Nausea [Not Recovered/Not Resolved]
  - Pain [Not Recovered/Not Resolved]
  - Constipation [Not Recovered/Not Resolved]
  - Anxiety [Not Recovered/Not Resolved]
  - Chest pain [Not Recovered/Not Resolved]
  - Anaemia [Not Recovered/Not Resolved]
  - Cough [Not Recovered/Not Resolved]
  - Dyspepsia [Not Recovered/Not Resolved]
  - Dysgeusia [Not Recovered/Not Resolved]
  - Stress [Not Recovered/Not Resolved]
  - Headache [Not Recovered/Not Resolved]
  - Decubitus ulcer [Recovering/Resolving]
  - Decreased appetite [Not Recovered/Not Resolved]
  - Overweight [Not Recovered/Not Resolved]
  - Depression [Not Recovered/Not Resolved]
  - Nocturia [Not Recovered/Not Resolved]
  - Dyspnoea [Not Recovered/Not Resolved]
  - Abdominal pain upper [Not Recovered/Not Resolved]
  - Heart rate increased [Not Recovered/Not Resolved]
  - Blood calcium decreased [Not Recovered/Not Resolved]
  - Fatigue [Not Recovered/Not Resolved]
  - Diarrhoea [Not Recovered/Not Resolved]
  - Arthralgia [Not Recovered/Not Resolved]
  - Metastases to bone [Not Recovered/Not Resolved]
  - Meniscus injury [Not Recovered/Not Resolved]

NARRATIVE: CASE EVENT DATE: 2017
